FAERS Safety Report 25150333 (Version 6)
Quarter: 2025Q2

REPORT INFORMATION
  Report Type: Report from Study
  Country: US (occurrence: US)
  Receive Date: 20250402
  Receipt Date: 20250613
  Transmission Date: 20250716
  Serious: No
  Sender: ACADIA PHARMACEUTICALS
  Company Number: US-ACADIA PHARMACEUTICALS INC.-ACA-2025-TRF-003630

PATIENT
  Age: 21 Year
  Sex: Female

DRUGS (2)
  1. DAYBUE [Suspect]
     Active Substance: TROFINETIDE
     Indication: Rett syndrome
     Dosage: 50 MILLILITER, BID (G-TUBE)
     Dates: end: 20250416
  2. DAYBUE [Suspect]
     Active Substance: TROFINETIDE
     Dosage: 35 UNK
     Route: 048

REACTIONS (3)
  - Mood swings [Not Recovered/Not Resolved]
  - Liver function test increased [Not Recovered/Not Resolved]
  - Underdose [Unknown]

NARRATIVE: CASE EVENT DATE: 20250408
